FAERS Safety Report 25234789 (Version 2)
Quarter: 2025Q2

REPORT INFORMATION
  Report Type: Spontaneous
  Country: US (occurrence: US)
  Receive Date: 20250424
  Receipt Date: 20250505
  Transmission Date: 20250716
  Serious: Yes (Hospitalization)
  Sender: TEVA
  Company Number: US-TEVA-VS-3322961

PATIENT
  Age: 39 Year
  Sex: Female

DRUGS (1)
  1. ETHINYL ESTRADIOL\ETONOGESTREL [Suspect]
     Active Substance: ETHINYL ESTRADIOL\ETONOGESTREL
     Indication: Contraception
     Dosage: ETHINYLESTRADIOL 15?G AND ETONOGESTREL 120?G
     Route: 067

REACTIONS (2)
  - Cerebral venous sinus thrombosis [Recovered/Resolved]
  - Pulmonary embolism [Recovered/Resolved]
